FAERS Safety Report 5654649-9 (Version None)
Quarter: 2008Q1

REPORT INFORMATION
  Report Type: 
  Country: None (occurrence: None)
  Receive Date: 20080307
  Receipt Date: 20080304
  Transmission Date: 20080703
  Serious: Yes (Disabling)
  Sender: FDA-Public Use
  Company Number: GB-AVENTIS-200810679GDDC

PATIENT
  Age: 56 Year
  Sex: Female
  Weight: 73.3 kg

DRUGS (6)
  1. LANTUS [Suspect]
     Route: 058
     Dates: start: 20071211, end: 20080115
  2. APIDRA [Suspect]
     Route: 058
     Dates: start: 20080110, end: 20080115
  3. BEZALIP-MONO [Concomitant]
     Route: 048
  4. LEVOTHYROXINE SODIUM [Concomitant]
     Route: 048
     Dates: start: 20071128
  5. OMEPRAZOLE [Concomitant]
     Route: 048
  6. CORACTEN [Concomitant]
     Route: 048

REACTIONS (7)
  - ARTHRALGIA [None]
  - GAIT DISTURBANCE [None]
  - JOINT SWELLING [None]
  - PAIN IN EXTREMITY [None]
  - PARAESTHESIA [None]
  - RASH [None]
  - TENDONITIS [None]
